FAERS Safety Report 23943840 (Version 4)
Quarter: 2024Q3

REPORT INFORMATION
  Report Type: Spontaneous
  Country: CA (occurrence: CA)
  Receive Date: 20240606
  Receipt Date: 20240930
  Transmission Date: 20241016
  Serious: Yes (Other)
  Sender: CELLTRION
  Company Number: CA-PFIZER INC-202400040077

PATIENT

DRUGS (9)
  1. INFLECTRA [Suspect]
     Active Substance: INFLIXIMAB-DYYB
     Indication: Crohn^s disease
     Dosage: 5 MG/KG, EVERY 8 WEEKS
     Route: 042
     Dates: start: 20240219
  2. INFLECTRA [Suspect]
     Active Substance: INFLIXIMAB-DYYB
     Dosage: 5 MG/KG, EVERY 8 WEEKS (420MG WEEK 2)
     Route: 042
     Dates: start: 20240305, end: 20240305
  3. INFLECTRA [Suspect]
     Active Substance: INFLIXIMAB-DYYB
     Dosage: 5 MG/KG, EVERY 8 WEEKS (435 MG 4 WEEKS AND 1 DAY (WEEK 6)
     Route: 042
     Dates: start: 20240403, end: 20240403
  4. INFLECTRA [Suspect]
     Active Substance: INFLIXIMAB-DYYB
     Dosage: 5 MG/KG (410 MG), EVERY 8 WEEKS
     Route: 042
     Dates: start: 20240529
  5. INFLECTRA [Suspect]
     Active Substance: INFLIXIMAB-DYYB
     Dosage: 420 MG EVERY 8 WEEKS (5 MG/KG)
     Route: 042
     Dates: start: 20240724
  6. PENTASA [Concomitant]
     Active Substance: MESALAMINE
     Dosage: 1 DF
     Dates: start: 202311
  7. PREDNISONE [Concomitant]
     Active Substance: PREDNISONE
     Dosage: 1 DF
     Dates: start: 202311
  8. MENINGOCOCCAL POLYSACCHARIDE VACCINE A NOS [Concomitant]
     Active Substance: MENINGOCOCCAL POLYSACCHARIDE VACCINE A\NEISSERIA MENINGITIDIS GROUP A CAPSULAR POLYSACCHARIDE ANTIGE
     Indication: Immunisation
     Dosage: DOSE NUMBER UNKNOWN, SINGLE
  9. VARICELLA-ZOSTER VIRUS STRAIN OKA/MERCK LIVE ANTIGEN [Concomitant]
     Active Substance: VARICELLA-ZOSTER VIRUS STRAIN OKA/MERCK LIVE ANTIGEN
     Indication: Varicella immunisation
     Dosage: DOSE NUMBER UNKNOWN, SINGLE

REACTIONS (18)
  - Condition aggravated [Recovered/Resolved]
  - General physical health deterioration [Recovered/Resolved]
  - Weight decreased [Not Recovered/Not Resolved]
  - Fall [Recovering/Resolving]
  - Lower limb fracture [Recovering/Resolving]
  - Wrist fracture [Recovering/Resolving]
  - Oedema peripheral [Recovering/Resolving]
  - Fatigue [Unknown]
  - Poor quality sleep [Unknown]
  - Blood pressure increased [Recovering/Resolving]
  - Tachycardia [Recovering/Resolving]
  - Joint swelling [Unknown]
  - Gait disturbance [Unknown]
  - Peripheral swelling [Not Recovered/Not Resolved]
  - Erythema [Not Recovered/Not Resolved]
  - Therapeutic response shortened [Unknown]
  - Incorrect product administration duration [Unknown]
  - Inappropriate schedule of product administration [Unknown]

NARRATIVE: CASE EVENT DATE: 20240101
